FAERS Safety Report 8966382 (Version 3)
Quarter: 2013Q1

REPORT INFORMATION
  Report Type: Spontaneous
  Country: US (occurrence: US)
  Receive Date: 20121214
  Receipt Date: 20130206
  Transmission Date: 20140127
  Serious: Yes (Hospitalization)
  Sender: FDA-Public Use
  Company Number: US-GLAXOSMITHKLINE-A1004907A

PATIENT
  Age: 80 Year
  Sex: Female

DRUGS (7)
  1. COREG [Suspect]
     Indication: CARDIOMEGALY
     Dosage: 12.5MG TWICE PER DAY
     Route: 048
  2. CARVEDILOL [Suspect]
     Indication: PRODUCT USED FOR UNKNOWN INDICATION
     Route: 065
  3. LISINOPRIL [Concomitant]
  4. HCTZ [Concomitant]
  5. MECLIZINE [Concomitant]
  6. FUROSEMIDE [Concomitant]
  7. VITAMINS [Concomitant]

REACTIONS (8)
  - Pericardial effusion [Unknown]
  - Atrial fibrillation [Recovered/Resolved]
  - Dyspnoea [Not Recovered/Not Resolved]
  - Heart rate increased [Not Recovered/Not Resolved]
  - Palpitations [Recovered/Resolved]
  - Swelling [Unknown]
  - Rash [Unknown]
  - Feeling abnormal [Unknown]
